FAERS Safety Report 4665873-6 (Version None)
Quarter: 2005Q2

REPORT INFORMATION
  Report Type: 
  Country: None (occurrence: None)
  Receive Date: 20050519
  Receipt Date: 20050512
  Transmission Date: 20051028
  Serious: Yes (Hospitalization)
  Sender: FDA-Public Use
  Company Number: US-BRISTOL-MYERS SQUIBB COMPANY-12966057

PATIENT
  Age: 47 Year
  Sex: Male
  Weight: 124 kg

DRUGS (7)
  1. CETUXIMAB [Suspect]
     Indication: COLORECTAL CANCER
     Dosage: 1ST INFUSION ON 27-APR-2005 (400 MG/M2 IV OVER 2 HOURS DAY 1, CYCLES 1 + 2). DELAYED 7 DAYS.
     Route: 042
     Dates: start: 20040525, end: 20040525
  2. BEVACIZUMAB [Suspect]
     Indication: COLORECTAL CANCER
     Dosage: 1ST INFUSION 28-APR-2004 (5 MG/KG IV OVER 30-90 MINS. DAYS 2,15,29-CYCLE 1). DELAYED 14 DAYS.
     Route: 042
     Dates: start: 20040525, end: 20040525
  3. ATENOLOL [Concomitant]
  4. IRON TABLETS [Concomitant]
  5. NEURONTIN [Concomitant]
  6. OXYCONTIN [Concomitant]
  7. VICODIN [Concomitant]

REACTIONS (3)
  - ESCHERICHIA INFECTION [None]
  - HYPOKALAEMIA [None]
  - INFECTION [None]
